FAERS Safety Report 4697115-X (Version None)
Quarter: 2005Q2

REPORT INFORMATION
  Report Type: 
  Country: None (occurrence: None)
  Receive Date: 20050622
  Receipt Date: 20050616
  Transmission Date: 20051028
  Serious: Yes (Death)
  Sender: FDA-Public Use
  Company Number: US-ROCHE-408107

PATIENT
  Age: 28 Year
  Sex: Male
  Weight: 65.8 kg

DRUGS (2)
  1. KLONOPIN [Suspect]
     Indication: DRUG USE FOR UNKNOWN INDICATION
     Route: 048
  2. ABILIFY [Concomitant]
     Route: 048

REACTIONS (1)
  - DRUG TOXICITY [None]
